FAERS Safety Report 4452909-0 (Version None)
Quarter: 2004Q3

REPORT INFORMATION
  Report Type: 
  Country: None (occurrence: None)
  Receive Date: 20040916
  Receipt Date: 20040902
  Transmission Date: 20050211
  Serious: Yes (Hospitalization, Other)
  Sender: FDA-Public Use
  Company Number: 2004056132

PATIENT
  Age: 80 Year
  Sex: Male

DRUGS (7)
  1. LIPITOR [Suspect]
     Indication: CAROTID ARTERY STENOSIS
     Dosage: 40 MG, UNKNOWN
  2. NOVOLIN 20/80 (INSULIN HUMAN, INSULIN ISOPHANE, HUMAN BIOSYNTHETIC) [Concomitant]
  3. CELECOXIB (CELECOXIB) [Concomitant]
  4. HYZAAR [Concomitant]
  5. INDAPAMIDE [Concomitant]
  6. LABETALOL HYDROCHLORIDE [Concomitant]
  7. DRUG, UNSPECIFIED (DRUGS, UNSPECIFIED) [Concomitant]

REACTIONS (5)
  - MALIGNANT MELANOMA [None]
  - METASTASES TO BONE [None]
  - METASTASES TO LUNG [None]
  - PLEURISY [None]
  - PLEURITIC PAIN [None]
